FAERS Safety Report 8901995 (Version 2)
Quarter: 2012Q4

REPORT INFORMATION
  Report Type: 
  Country: IT (occurrence: IT)
  Receive Date: 20121112
  Receipt Date: 20121212
  Transmission Date: 20130627
  Serious: Yes (Hospitalization)
  Sender: FDA-Public Use
  Company Number: IT-ELI_LILLY_AND_COMPANY-IT201211000953

PATIENT
  Age: 37 Year
  Sex: Male

DRUGS (2)
  1. HUMULIN REGULAR [Suspect]
     Indication: DIABETES MELLITUS
     Dosage: 30 IU, qd
     Route: 058
     Dates: start: 20111020, end: 20121020
  2. LANTUS [Concomitant]
     Indication: DIABETES MELLITUS
     Dosage: 20 IU, qd
     Route: 058
     Dates: start: 20111020, end: 20121020

REACTIONS (5)
  - Fall [Recovered/Resolved]
  - Hypoglycaemic unconsciousness [Recovered/Resolved]
  - Craniocerebral injury [Recovered/Resolved]
  - Laceration [Recovered/Resolved]
  - Contusion [Recovered/Resolved]
